FAERS Safety Report 8221595-6 (Version None)
Quarter: 2012Q1

REPORT INFORMATION
  Report Type: 
  Country: None (occurrence: None)
  Receive Date: 20120320
  Receipt Date: 20120307
  Transmission Date: 20120608
  Serious: Yes (Other)
  Sender: FDA-Public Use
  Company Number: US-JNJFOC-20120303989

PATIENT
  Sex: Female

DRUGS (5)
  1. BENADRYL [Suspect]
     Indication: PHARYNGEAL OEDEMA
     Route: 048
  2. PEPCID [Concomitant]
     Indication: GASTROOESOPHAGEAL REFLUX DISEASE
     Dosage: AS NEEDED
     Route: 065
     Dates: end: 20120306
  3. BENADRYL [Suspect]
     Indication: DYSPNOEA
     Route: 048
  4. BENADRYL [Suspect]
     Indication: SWOLLEN TONGUE
     Route: 048
  5. BENADRYL [Suspect]
     Indication: LIP SWELLING
     Route: 048

REACTIONS (6)
  - SWOLLEN TONGUE [None]
  - OFF LABEL USE [None]
  - THERAPEUTIC RESPONSE UNEXPECTED [None]
  - DYSPNOEA [None]
  - PHARYNGEAL OEDEMA [None]
  - LIP SWELLING [None]
